FAERS Safety Report 6649817-3 (Version None)
Quarter: 2010Q1

REPORT INFORMATION
  Report Type: 
  Country: None (occurrence: None)
  Receive Date: 20100325
  Receipt Date: 20100310
  Transmission Date: 20100710
  Serious: Yes (Hospitalization)
  Sender: FDA-Public Use
  Company Number: TW-MYLANLABS-2010S1003980

PATIENT
  Age: 34 Year
  Sex: Female

DRUGS (4)
  1. TACROLIMUS [Suspect]
     Indication: IMMUNOSUPPRESSION
     Route: 048
  2. MYCOPHENOLATE MOFETIL [Suspect]
     Indication: IMMUNOSUPPRESSION
     Route: 048
  3. METHYLPREDNISOLONE [Suspect]
     Indication: IMMUNOSUPPRESSION
     Route: 048
  4. ANTI-THYMOCYTE GLOBULIN NOS [Suspect]
     Indication: IMMUNOSUPPRESSION
     Route: 065

REACTIONS (7)
  - ABDOMINAL ABSCESS [None]
  - ASPERGILLOSIS [None]
  - HAEMODIALYSIS [None]
  - HEPATOTOXICITY [None]
  - RENAL MASS [None]
  - SCIATICA [None]
  - VASCULAR PSEUDOANEURYSM [None]
